FAERS Safety Report 14518763 (Version 1)
Quarter: 2018Q1

REPORT INFORMATION
  Report Type: Spontaneous
  Country: US (occurrence: US)
  Receive Date: 20180209
  Receipt Date: 20180209
  Transmission Date: 20180509
  Serious: No
  Sender: FDA-Public Use
  Company Number: None

PATIENT
  Age: 43 Year
  Sex: Female
  Weight: 108 kg

DRUGS (5)
  1. PREDNISOLONE. [Suspect]
     Active Substance: PREDNISOLONE
     Indication: CONJUNCTIVITIS
     Dosage: ?          QUANTITY:1 DROP(S);?
     Route: 047
     Dates: start: 20180130, end: 20180208
  2. MULTI [Concomitant]
  3. PROBIOTIC [Concomitant]
     Active Substance: PROBIOTICS NOS
  4. CALCIUM [Concomitant]
     Active Substance: CALCIUM
  5. BIOTIN [Concomitant]
     Active Substance: BIOTIN

REACTIONS (5)
  - Drug ineffective [None]
  - Epistaxis [None]
  - Nasal dryness [None]
  - Headache [None]
  - Rhinorrhoea [None]

NARRATIVE: CASE EVENT DATE: 20180130
